FAERS Safety Report 4816127-6 (Version None)
Quarter: 2005Q4

REPORT INFORMATION
  Report Type: 
  Country: None (occurrence: None)
  Receive Date: 20051031
  Receipt Date: 20051021
  Transmission Date: 20060501
  Serious: Yes (Hospitalization, Other)
  Sender: FDA-Public Use
  Company Number: BE-ABBOTT-05P-013-0315442-00

PATIENT
  Sex: Female

DRUGS (27)
  1. ZEMPLAR [Suspect]
     Indication: DRUG USE FOR UNKNOWN INDICATION
     Route: 042
     Dates: start: 20050629
  2. VALPROATE SODIUM [Concomitant]
     Indication: EPILEPSY
     Dates: start: 20040101
  3. LEVETIRACETAM [Concomitant]
     Indication: EPILEPSY
     Dates: start: 20050218
  4. FOLIC ACID [Concomitant]
     Indication: VITAMIN SUPPLEMENTATION
     Dates: start: 20050718
  5. IRONSACCHAROSE [Concomitant]
     Indication: MINERAL SUPPLEMENTATION
     Dates: start: 20031212, end: 20050902
  6. R-HU ERYTHROPOETINE ALFA [Concomitant]
     Indication: ANAEMIA
     Dates: start: 20050406
  7. SODIUM POLYSTYRENE SULFONATE [Concomitant]
     Indication: BLOOD POTASSIUM INCREASED
     Dates: start: 20040628, end: 20050322
  8. LEVOTHYROXINE SODIUM [Concomitant]
     Indication: AUTOIMMUNE THYROIDITIS
     Dates: end: 20051004
  9. LEVOTHYROXINE SODIUM [Concomitant]
     Dates: start: 20051005
  10. CALCIUM CARBONATE [Concomitant]
     Indication: MINERAL SUPPLEMENTATION
     Dates: start: 20040121
  11. PAROXETINE HCL [Concomitant]
     Indication: DEPRESSION
     Dates: start: 20050315
  12. SIMVASTATIN [Concomitant]
     Indication: HYPERCHOLESTEROLAEMIA
     Dates: start: 20050523
  13. CLAVULIN [Concomitant]
     Indication: ESCHERICHIA SEPSIS
     Dates: start: 20050524, end: 20050718
  14. ACETAMINOPHEN [Concomitant]
     Indication: PAIN
     Dates: start: 20050711
  15. ACETAMINOPHEN [Concomitant]
     Indication: CATHETER SITE PAIN
     Route: 042
     Dates: start: 20050926, end: 20050928
  16. GENTAMICIN [Concomitant]
     Indication: ESCHERICHIA SEPSIS
     Dates: start: 20050525, end: 20050715
  17. GENTAMICIN [Concomitant]
     Dates: start: 20050926
  18. ALLOPURINOL [Concomitant]
     Indication: HYPERURICAEMIA
     Dates: start: 20030101, end: 20050719
  19. ALLOPURINOL [Concomitant]
     Dates: start: 20050817
  20. DESORELLE [Concomitant]
     Indication: CONTRACEPTION
     Dates: start: 20050530
  21. VANCOMYCIN [Concomitant]
     Indication: CATHETER SEPSIS
     Dates: start: 20050926
  22. PARACETAMOL FORTE [Concomitant]
     Indication: CATHETER SITE PAIN
     Route: 048
     Dates: start: 20050925, end: 20050926
  23. DIAZEPAM [Concomitant]
     Indication: EPILEPSY
     Dates: start: 20050912, end: 20050912
  24. UROKINASE [Concomitant]
     Indication: CATHETER RELATED COMPLICATION
     Dates: start: 20050909, end: 20050914
  25. LOPERAMIDE HYDROCHLORIDE [Concomitant]
     Indication: DIARRHOEA
     Dates: start: 20051003, end: 20051005
  26. LOPERAMIDE HYDROCHLORIDE [Concomitant]
     Dates: start: 20051010, end: 20051012
  27. ALFA-RIX [Concomitant]
     Indication: INFLUENZA IMMUNISATION
     Dates: start: 20051012, end: 20051012

REACTIONS (7)
  - CATHETER RELATED COMPLICATION [None]
  - CATHETER SITE PAIN [None]
  - EPILEPSY [None]
  - PROCEDURAL COMPLICATION [None]
  - PYREXIA [None]
  - STAPHYLOCOCCAL SEPSIS [None]
  - TACHYCARDIA [None]
